FAERS Safety Report 20711626 (Version 1)
Quarter: 2022Q2

REPORT INFORMATION
  Report Type: Spontaneous
  Country: AU (occurrence: AU)
  Receive Date: 20220414
  Receipt Date: 20220414
  Transmission Date: 20220721
  Serious: Yes (Other)
  Sender: FDA-Public Use
  Company Number: AU-BoehringerIngelheim-2022-BI-165154

PATIENT
  Age: 3 Year
  Sex: Female
  Weight: 14 kg

DRUGS (1)
  1. CLONIDINE HYDROCHLORIDE [Suspect]
     Active Substance: CLONIDINE HYDROCHLORIDE
     Indication: Product used for unknown indication
     Dosage: UP TO 10 TABLETS INGESTED [MAX 1.5 MG]
     Route: 048
     Dates: start: 20210325, end: 20210325

REACTIONS (5)
  - Bradycardia [Unknown]
  - Accidental exposure to product by child [Unknown]
  - Blood pressure diastolic decreased [Unknown]
  - Respiratory rate decreased [Unknown]
  - Somnolence [Unknown]

NARRATIVE: CASE EVENT DATE: 20210325
